FAERS Safety Report 16810517 (Version 1)
Quarter: 2019Q4

REPORT INFORMATION
  Report Type: Spontaneous
  Country: US (occurrence: US)
  Receive Date: 20190916
  Receipt Date: 20190916
  Transmission Date: 20200122
  Serious: No
  Sender: FDA-Public Use
  Company Number: None

PATIENT
  Age: 41 Year
  Sex: Female
  Weight: 81 kg

DRUGS (2)
  1. HUMIRA [Concomitant]
     Active Substance: ADALIMUMAB
  2. NITROFURANTOIN MONOHYDRATE MACROCRYSTALS [Suspect]
     Active Substance: NITROFURANTOIN\NITROFURANTOIN MONOHYDRATE
     Indication: URINARY TRACT INFECTION
     Dosage: ?          QUANTITY:20 CAPSULE(S);?
     Route: 048
     Dates: start: 20190903, end: 20190913

REACTIONS (10)
  - Diarrhoea [None]
  - Arthralgia [None]
  - Anxiety [None]
  - Tremor [None]
  - Influenza [None]
  - Grip strength decreased [None]
  - Feeling jittery [None]
  - Panic attack [None]
  - Pain [None]
  - Dyspnoea [None]

NARRATIVE: CASE EVENT DATE: 20190914
